FAERS Safety Report 26046967 (Version 1)
Quarter: 2025Q4

REPORT INFORMATION
  Report Type: Spontaneous
  Country: EU (occurrence: EU)
  Receive Date: 20251114
  Receipt Date: 20251114
  Transmission Date: 20260118
  Serious: Yes (Death, Congenital Anomaly)
  Sender: ELI LILLY AND COMPANY
  Company Number: None

PATIENT
  Sex: Male

DRUGS (2)
  1. TRULICITY [Suspect]
     Active Substance: DULAGLUTIDE
     Indication: Insulin-requiring type 2 diabetes mellitus
     Dosage: 4.5 MG, WEEKLY (1/W)
     Route: 064
     Dates: start: 202502, end: 20250715
  2. TAHOR [Suspect]
     Active Substance: ATORVASTATIN CALCIUM
     Indication: Dyslipidaemia
     Dosage: 20 MG, DAILY
     Route: 064
     Dates: start: 202502, end: 20250715

REACTIONS (2)
  - Potter^s syndrome [Fatal]
  - Foetal exposure during pregnancy [Not Recovered/Not Resolved]

NARRATIVE: CASE EVENT DATE: 20250201
